FAERS Safety Report 9274767 (Version 1)
Quarter: 2013Q2

REPORT INFORMATION
  Report Type: Spontaneous
  Country: US (occurrence: None)
  Receive Date: 20130501
  Receipt Date: 20130501
  Transmission Date: 20140414
  Serious: Yes (Other)
  Sender: FDA-Public Use
  Company Number: None

PATIENT
  Sex: Female
  Weight: 72.12 kg

DRUGS (2)
  1. ESCITALOPRAM [Suspect]
     Indication: ANXIETY
     Dates: start: 201212
  2. ESCITALOPRAM [Suspect]
     Indication: DEPRESSION
     Dates: start: 201212

REACTIONS (2)
  - Irritability [None]
  - Product substitution issue [None]
